FAERS Safety Report 10535145 (Version 1)
Quarter: 2014Q4

REPORT INFORMATION
  Report Type: Spontaneous
  Country: US (occurrence: US)
  Receive Date: 20141022
  Receipt Date: 20141022
  Transmission Date: 20150529
  Serious: No
  Sender: FDA-Public Use
  Company Number: US-SHIRE-US201406633

PATIENT
  Sex: Male
  Weight: 67.6 kg

DRUGS (6)
  1. XYREM [Concomitant]
     Active Substance: SODIUM OXYBATE
     Dosage: 4.5 G, OTHER, TWICE NIGHTLY
     Route: 048
     Dates: start: 200812
  2. NUVIGIL [Concomitant]
     Active Substance: ARMODAFINIL
     Indication: PRODUCT USED FOR UNKNOWN INDICATION
     Dosage: UNK, UNKNOWN
     Route: 065
  3. RITALIN [Concomitant]
     Active Substance: METHYLPHENIDATE HYDROCHLORIDE
     Indication: PRODUCT USED FOR UNKNOWN INDICATION
     Dosage: UNK, UNKNOWN
     Route: 065
     Dates: start: 20140911
  4. XYREM [Concomitant]
     Active Substance: SODIUM OXYBATE
     Dosage: 500 MG/ML, UNKNOWN
     Route: 048
  5. ADDERALL XR [Suspect]
     Active Substance: AMPHETAMINE ASPARTATE\AMPHETAMINE SULFATE\DEXTROAMPHETAMINE SACCHARATE\DEXTROAMPHETAMINE SULFATE
     Indication: PRODUCT USED FOR UNKNOWN INDICATION
     Dosage: UNK, UNKNOWN
     Route: 048
  6. XYREM [Concomitant]
     Active Substance: SODIUM OXYBATE
     Indication: NARCOLEPSY
     Dosage: 2.25 G, OTHER, TWICE NIGHTLY
     Route: 048
     Dates: start: 200805, end: 200806

REACTIONS (1)
  - Drug ineffective [Recovered/Resolved]
